FAERS Safety Report 13823493 (Version 3)
Quarter: 2017Q4

REPORT INFORMATION
  Report Type: Report from Study
  Country: None (occurrence: JP)
  Receive Date: 20170802
  Receipt Date: 20171011
  Transmission Date: 20180320
  Serious: Yes (Hospitalization, Other)
  Sender: FDA-Public Use
  Company Number: JP-VIFOR (INTERNATIONAL) INC.-VIT-2017-08102

PATIENT
  Age: 63 Year
  Sex: Male

DRUGS (16)
  1. ARTIST [Concomitant]
     Active Substance: CARVEDILOL
  2. BASEN [Concomitant]
     Active Substance: VOGLIBOSE
  3. RIZE [Concomitant]
     Active Substance: CLOTIAZEPAM
  4. EQUA [Concomitant]
     Active Substance: VILDAGLIPTIN
     Route: 048
  5. SIGMART [Concomitant]
     Active Substance: NICORANDIL
     Route: 065
  6. FEBURIC [Concomitant]
     Active Substance: FEBUXOSTAT
  7. EFIENT [Concomitant]
     Active Substance: PRASUGREL HYDROCHLORIDE
  8. DOPS [Concomitant]
     Active Substance: DROXIDOPA
  9. PROMAC [Concomitant]
     Active Substance: NITROFURANTOIN
  10. VELPHORO [Suspect]
     Active Substance: FERRIC OXYHYDROXIDE
     Indication: HYPERPHOSPHATAEMIA
     Route: 048
     Dates: start: 20160527, end: 20170315
  11. ALFAROL [Concomitant]
     Active Substance: ALFACALCIDOL
  12. ANPLAG [Concomitant]
     Active Substance: SARPOGRELATE
  13. LYRICA [Concomitant]
     Active Substance: PREGABALIN
  14. CALTAN [Concomitant]
     Active Substance: CALCIUM CARBONATE
     Route: 048
  15. KINEDAK [Concomitant]
     Active Substance: EPALRESTAT
  16. ACETYLSALICYLIC ACID [Concomitant]
     Active Substance: ASPIRIN

REACTIONS (5)
  - Diarrhoea [Recovered/Resolved]
  - Abdominal pain [Recovered/Resolved]
  - Portal venous gas [Recovered/Resolved]
  - Gastrointestinal necrosis [Recovered/Resolved]
  - Nausea [Recovered/Resolved]

NARRATIVE: CASE EVENT DATE: 2017
